FAERS Safety Report 8397822-1 (Version None)
Quarter: 2012Q2

REPORT INFORMATION
  Report Type: 
  Country: None (occurrence: None)
  Receive Date: 20120531
  Receipt Date: 20120528
  Transmission Date: 20120825
  Serious: Yes (Life-Threatening, Hospitalization)
  Sender: FDA-Public Use
  Company Number: GB-JNJFOC-20120519672

PATIENT
  Age: 18 Year
  Sex: Female
  Weight: 56 kg

DRUGS (2)
  1. BECLOMETHASONE DIPROPIONATE [Concomitant]
     Route: 065
  2. ORTHO EVRA [Suspect]
     Indication: PRODUCT USED FOR UNKNOWN INDICATION
     Route: 062

REACTIONS (1)
  - SUPERIOR SAGITTAL SINUS THROMBOSIS [None]
